FAERS Safety Report 4285994-X (Version None)
Quarter: 2004Q1

REPORT INFORMATION
  Report Type: 
  Country: None (occurrence: None)
  Receive Date: 20040203
  Receipt Date: 20040123
  Transmission Date: 20041129
  Serious: Yes (Disabling, Other)
  Sender: FDA-Public Use
  Company Number: 2003041722

PATIENT
  Age: 64 Year
  Sex: Male
  Weight: 102.0593 kg

DRUGS (5)
  1. NEURONTIN [Suspect]
     Indication: MYALGIA
     Dosage: 600 MG (300, BID), ORAL
     Route: 048
     Dates: end: 20031001
  2. LIPITOR [Concomitant]
  3. CLOPIDOGREL BISULFATE [Concomitant]
  4. TOPROL (METOPROLOL) [Concomitant]
  5. ACE INHIBITOR NOS [Concomitant]

REACTIONS (5)
  - COORDINATION ABNORMAL [None]
  - DYSTONIA [None]
  - MEMORY IMPAIRMENT [None]
  - NERVOUS SYSTEM DISORDER [None]
  - TREMOR [None]
